FAERS Safety Report 26186495 (Version 1)
Quarter: 2025Q4

REPORT INFORMATION
  Report Type: Spontaneous
  Country: US (occurrence: US)
  Receive Date: 20251222
  Receipt Date: 20251222
  Transmission Date: 20260118
  Serious: No
  Sender: VERTEX
  Company Number: US-VERTEX PHARMACEUTICALS-2025-021622

PATIENT
  Age: 78 Year

DRUGS (2)
  1. JOURNAVX [Suspect]
     Active Substance: SUZETRIGINE
     Indication: Back pain
     Dosage: 100 MG (02 TABLETS OF 50MG), SINGLE (INITIAL DOSE)
     Route: 061
     Dates: start: 20251206, end: 20251206
  2. JOURNAVX [Suspect]
     Active Substance: SUZETRIGINE
     Indication: Intervertebral disc degeneration
     Dosage: 50MG SUZETRIGINE (SUBSEQUENT DOSE)
     Route: 061
     Dates: start: 20251207, end: 20251213

REACTIONS (2)
  - Regurgitation [Recovering/Resolving]
  - Off label use [Unknown]

NARRATIVE: CASE EVENT DATE: 20251206
